FAERS Safety Report 11117042 (Version 1)
Quarter: 2015Q2

REPORT INFORMATION
  Report Type: Spontaneous
  Country: US (occurrence: US)
  Receive Date: 20150515
  Receipt Date: 20150515
  Transmission Date: 20150821
  Serious: Yes (Other)
  Sender: FDA-Public Use
  Company Number: US-PFIZER INC-2015157053

PATIENT
  Sex: Female

DRUGS (2)
  1. AROMASIN [Suspect]
     Active Substance: EXEMESTANE
     Indication: BREAST CANCER RECURRENT
     Dosage: UNK
  2. EXEMESTANE. [Suspect]
     Active Substance: EXEMESTANE
     Indication: BREAST CANCER RECURRENT
     Dosage: UNK

REACTIONS (3)
  - Chest discomfort [Unknown]
  - Fatigue [Unknown]
  - Dyspnoea [Unknown]
